FAERS Safety Report 6924898-8 (Version None)
Quarter: 2010Q3

REPORT INFORMATION
  Report Type: 
  Country: None (occurrence: None)
  Receive Date: 20100816
  Receipt Date: 20100804
  Transmission Date: 20110219
  Serious: Yes (Other)
  Sender: FDA-Public Use
  Company Number: US-PFIZER INC-2010098808

PATIENT
  Sex: Male
  Weight: 125 kg

DRUGS (2)
  1. SUTENT [Suspect]
     Indication: METASTATIC RENAL CELL CARCINOMA
     Dosage: 50 MG, 1X/DAY
     Route: 048
     Dates: start: 20090801
  2. VASOTEC [Concomitant]
     Dosage: 20 MG, DAILY

REACTIONS (1)
  - PULMONARY THROMBOSIS [None]
